FAERS Safety Report 6516680-0 (Version None)
Quarter: 2009Q4

REPORT INFORMATION
  Report Type: 
  Country: None (occurrence: None)
  Receive Date: 20091223
  Receipt Date: 20091211
  Transmission Date: 20100525
  Serious: Yes (Hospitalization)
  Sender: FDA-Public Use
  Company Number: US-BAYER-200917494BCC

PATIENT
  Age: 72 Year
  Sex: Male
  Weight: 79 kg

DRUGS (13)
  1. ASPIRIN [Suspect]
     Indication: PROPHYLAXIS
     Dosage: TOTAL DAILY DOSE: 81 MG  UNIT DOSE: 81 MG
     Route: 048
     Dates: start: 20041102
  2. SCH 530348 OR PLACEBO [Suspect]
     Indication: THROMBOSIS PROPHYLAXIS
     Dosage: TOTAL DAILY DOSE: 2.5 MG
     Route: 048
     Dates: start: 20080226, end: 20091024
  3. CLOPIDOGREL [Suspect]
     Indication: DRUG USE FOR UNKNOWN INDICATION
     Dosage: TOTAL DAILY DOSE: 75 MG
     Route: 048
     Dates: start: 20041102
  4. HEPARIN SODIUM [Suspect]
     Indication: DEEP VEIN THROMBOSIS
     Route: 042
     Dates: start: 20091026, end: 20091101
  5. AZOR [Concomitant]
     Route: 065
     Dates: start: 20090811
  6. TYLENOL (CAPLET) [Concomitant]
     Route: 065
     Dates: start: 20090130
  7. ZETIA [Concomitant]
     Route: 065
     Dates: start: 20080211
  8. METOPROLOL TARTRATE [Concomitant]
     Route: 065
     Dates: start: 20071017
  9. INSULIN [Concomitant]
     Route: 065
     Dates: start: 20060308
  10. GLIPIZIDE [Concomitant]
     Route: 065
     Dates: start: 20041102
  11. PRANDIN [Concomitant]
     Route: 065
     Dates: start: 20091102
  12. SIMVASTATIN [Concomitant]
     Route: 065
     Dates: start: 20041102
  13. FERROUS SULFATE TAB [Concomitant]
     Indication: NORMOCHROMIC NORMOCYTIC ANAEMIA
     Route: 065

REACTIONS (4)
  - CARDIAC FAILURE [None]
  - DEEP VEIN THROMBOSIS [None]
  - DYSPNOEA [None]
  - NORMOCHROMIC NORMOCYTIC ANAEMIA [None]
